FAERS Safety Report 10678743 (Version 3)
Quarter: 2015Q1

REPORT INFORMATION
  Report Type: Spontaneous
  Country: JP (occurrence: None)
  Receive Date: 20141223
  Receipt Date: 20150129
  Transmission Date: 20150720
  Serious: Yes (Life-Threatening, Hospitalization, Other)
  Sender: FDA-Public Use
  Company Number: 2014FE03615

PATIENT
  Age: 70 Year
  Sex: Male

DRUGS (6)
  1. FAMOTIDINE (FAMOTIDINE) [Suspect]
     Active Substance: FAMOTIDINE
  2. DOCETAXEL (DOCETAXEL) [Concomitant]
     Active Substance: DOCETAXEL
  3. PREDNIN (PREDNISOLONE SODIUM PHOSPHATE) [Concomitant]
  4. GONAX [Suspect]
     Active Substance: DEGARELIX
     Indication: HORMONE-REFRACTORY PROSTATE CANCER
     Route: 058
     Dates: start: 20141121, end: 20141121
  5. XTANDI [Suspect]
     Active Substance: ENZALUTAMIDE
     Indication: HORMONE-REFRACTORY PROSTATE CANCER
     Dosage: 160 MG, 1 TIME DAILY, ORAL
     Route: 048
  6. ESTTRACYT /00327002/ (ESTRAMUSTINE PHOSPHATE SODIUM) [Concomitant]

REACTIONS (1)
  - Platelet count decreased [None]

NARRATIVE: CASE EVENT DATE: 20141205
